FAERS Safety Report 6146484-2 (Version None)
Quarter: 2009Q2

REPORT INFORMATION
  Report Type: 
  Country: None (occurrence: None)
  Receive Date: 20090407
  Receipt Date: 20090403
  Transmission Date: 20091009
  Serious: Yes (Other)
  Sender: FDA-Public Use
  Company Number: B0564405A

PATIENT
  Sex: Female

DRUGS (3)
  1. ZOVIRAX [Suspect]
     Indication: DRUG USE FOR UNKNOWN INDICATION
     Route: 031
     Dates: start: 20090306, end: 20090306
  2. FLUMETHOLON [Concomitant]
     Route: 031
     Dates: start: 20070101
  3. CRAVIT [Concomitant]
     Route: 031
     Dates: start: 20070101

REACTIONS (6)
  - APPLICATION SITE EROSION [None]
  - DRUG DISPENSING ERROR [None]
  - EYE IRRITATION [None]
  - HYPOAESTHESIA [None]
  - HYPOAESTHESIA FACIAL [None]
  - INCORRECT ROUTE OF DRUG ADMINISTRATION [None]
